FAERS Safety Report 8140834 (Version 3)
Quarter: 2013Q3

REPORT INFORMATION
  Report Type: Report from Study
  Country: DE (occurrence: DE)
  Receive Date: 20110916
  Receipt Date: 20130723
  Transmission Date: 20140515
  Serious: Yes (Death, Hospitalization, Other)
  Sender: FDA-Public Use
  Company Number: DE-ABBOTT-11P-062-0855094-00

PATIENT
  Age: 66 Year
  Sex: Female
  Weight: 150 kg

DRUGS (3)
  1. HUMIRA 40 MG/ 0.8 ML PRE-FILLED SYRINGE [Suspect]
     Indication: RHEUMATOID ARTHRITIS
     Dates: start: 200902, end: 200911
  2. TOCILIZUMAB [Suspect]
     Indication: PRODUCT USED FOR UNKNOWN INDICATION
     Dates: start: 200912, end: 201002
  3. LEFLUNOMIDE [Concomitant]
     Indication: PRODUCT USED FOR UNKNOWN INDICATION
     Dates: start: 200811, end: 201003

REACTIONS (17)
  - Pancreatitis necrotising [Fatal]
  - Ileus paralytic [Fatal]
  - Post procedural sepsis [Fatal]
  - Necrosis [Unknown]
  - Skin graft [Unknown]
  - Skin graft [Unknown]
  - Staphylococcal infection [Unknown]
  - Cardiac pacemaker insertion [Unknown]
  - Staphylococcal infection [Unknown]
  - Pseudomonas infection [Unknown]
  - Klebsiella infection [Unknown]
  - Renal failure [Unknown]
  - Cholelithiasis [Unknown]
  - Duodenitis [Unknown]
  - Hepatic haemorrhage [Unknown]
  - Arthritis infective [Unknown]
  - Gastrointestinal oedema [Unknown]
